FAERS Safety Report 11930594 (Version 1)
Quarter: 2016Q1

REPORT INFORMATION
  Report Type: Spontaneous
  Country: US (occurrence: US)
  Receive Date: 20160120
  Receipt Date: 20160120
  Transmission Date: 20160526
  Serious: Yes (Death)
  Sender: FDA-Public Use
  Company Number: US-MEDA-2016010058

PATIENT
  Age: 23 Month
  Sex: Male

DRUGS (5)
  1. CARISOPRODOL. [Suspect]
     Active Substance: CARISOPRODOL
  2. OXYCODONE [Suspect]
     Active Substance: OXYCODONE
  3. CLONAZEPAM. [Suspect]
     Active Substance: CLONAZEPAM
  4. ETHANOL [Suspect]
     Active Substance: ALCOHOL
  5. ALPRAZOLAM. [Suspect]
     Active Substance: ALPRAZOLAM

REACTIONS (2)
  - Toxicity to various agents [Fatal]
  - Cardiac arrest [Fatal]

NARRATIVE: CASE EVENT DATE: 2014
